FAERS Safety Report 10421030 (Version 1)
Quarter: 2014Q3

REPORT INFORMATION
  Report Type: Spontaneous
  Country: CA (occurrence: None)
  Receive Date: 20140828
  Receipt Date: 20140828
  Transmission Date: 20150326
  Serious: Yes (Hospitalization)
  Sender: FDA-Public Use
  Company Number: 2506045

PATIENT
  Sex: Male
  Weight: 2 kg

DRUGS (5)
  1. FENTANYL CITRATE. [Suspect]
     Active Substance: FENTANYL CITRATE
     Route: 064
  2. DOXYLAMINE [Suspect]
     Active Substance: DOXYLAMINE
     Route: 064
  3. MORPHINE SULPHATE [Suspect]
     Active Substance: MORPHINE SULFATE
     Route: 064
  4. BUPIVACAINE HYDROCHLORIDE. [Suspect]
     Active Substance: BUPIVACAINE HYDROCHLORIDE
     Route: 064
  5. ONDANSETRON [Suspect]
     Active Substance: ONDANSETRON
     Route: 064

REACTIONS (3)
  - Herpes simplex [None]
  - Neonatal infection [None]
  - Maternal exposure timing unspecified [None]
